FAERS Safety Report 16235776 (Version 1)
Quarter: 2019Q2

REPORT INFORMATION
  Report Type: Spontaneous
  Country: GB (occurrence: GB)
  Receive Date: 20190424
  Receipt Date: 20190424
  Transmission Date: 20190711
  Serious: Yes (Hospitalization)
  Sender: FDA-Public Use
  Company Number: PHHY2019GB094909

PATIENT
  Age: 35 Year
  Sex: Female

DRUGS (4)
  1. GAVISCON ORIGINAL ANTISEED RELIEF [Concomitant]
     Indication: GASTROOESOPHAGEAL REFLUX DISEASE
     Dosage: 600 ML, QW
     Route: 065
  2. PARACETAMOL [Suspect]
     Active Substance: ACETAMINOPHEN
     Indication: BACK PAIN
     Dosage: 7.5 G, QD
     Route: 065
  3. IBUPROFEN. [Suspect]
     Active Substance: IBUPROFEN
     Indication: BACK PAIN
     Dosage: 6 G, QD
     Route: 065
  4. RENNIE PEPPERMINT [Concomitant]
     Active Substance: CALCIUM CARBONATE\MAGNESIUM CARBONATE
     Indication: GASTROOESOPHAGEAL REFLUX DISEASE
     Dosage: 72 TABLETS/DAY FOR EIGHT MONTHS
     Route: 065

REACTIONS (1)
  - Gastric ulcer [Unknown]
